FAERS Safety Report 12595270 (Version 1)
Quarter: 2016Q3

REPORT INFORMATION
  Report Type: Spontaneous
  Country: US (occurrence: US)
  Receive Date: 20160726
  Receipt Date: 20160726
  Transmission Date: 20161109
  Serious: No
  Sender: FDA-Public Use
  Company Number: US-ENDO PHARMACEUTICALS INC.-2015-002736

PATIENT
  Age: 56 Year
  Sex: Male
  Weight: 79.45 kg

DRUGS (1)
  1. LISINOPRIL TABLETS 20MG [Suspect]
     Active Substance: LISINOPRIL
     Indication: HYPERTENSION
     Route: 048
     Dates: start: 20130808, end: 20130927

REACTIONS (4)
  - Alopecia [Not Recovered/Not Resolved]
  - Trichorrhexis [Recovered/Resolved]
  - Hair texture abnormal [Recovered/Resolved]
  - Depression [Not Recovered/Not Resolved]

NARRATIVE: CASE EVENT DATE: 20130927
